FAERS Safety Report 7387169-4 (Version None)
Quarter: 2011Q1

REPORT INFORMATION
  Report Type: 
  Country: None (occurrence: None)
  Receive Date: 20110331
  Receipt Date: 20110323
  Transmission Date: 20110831
  Serious: Yes (Other)
  Sender: FDA-Public Use
  Company Number: B0691765A

PATIENT
  Age: 26 Year
  Sex: Female

DRUGS (3)
  1. IMPLANON [Suspect]
     Dates: start: 20101021
  2. IMPLANON [Suspect]
     Dates: start: 20071116, end: 20101021
  3. ACYCLOVIR [Suspect]

REACTIONS (2)
  - ECTOPIC PREGNANCY [None]
  - PREGNANCY WITH IMPLANT CONTRACEPTIVE [None]
